FAERS Safety Report 4279165-0 (Version None)
Quarter: 2004Q1

REPORT INFORMATION
  Report Type: 
  Country: None (occurrence: None)
  Receive Date: 20040122
  Receipt Date: 20040107
  Transmission Date: 20041129
  Serious: Yes (Life-Threatening, Hospitalization)
  Sender: FDA-Public Use
  Company Number: SYN_0015-2004

PATIENT
  Age: 0 Day
  Sex: Male
  Weight: 4.2 kg

DRUGS (2)
  1. PAROXETINE [Suspect]
     Indication: ACCIDENTAL EXPOSURE
     Dosage: 20 MG QDAY PO
     Route: 048
  2. VITAMIN K TAB [Concomitant]

REACTIONS (14)
  - CEREBRAL VENTRICLE DILATATION [None]
  - CONGENITAL HYPEREXTENSION OF SPINE [None]
  - CONVULSION NEONATAL [None]
  - EYE MOVEMENT DISORDER [None]
  - FONTANELLE BULGING [None]
  - HYPOTONIA NEONATAL [None]
  - INTRAVENTRICULAR HAEMORRHAGE NEONATAL [None]
  - LABORATORY TEST ABNORMAL [None]
  - LETHARGY [None]
  - MATERNAL DRUGS AFFECTING FOETUS [None]
  - NEONATAL APNOEIC ATTACK [None]
  - NEONATAL DISORDER [None]
  - NERVOUS SYSTEM DISORDER [None]
  - NUCLEAR MAGNETIC RESONANCE IMAGING BRAIN ABNORMAL [None]
